FAERS Safety Report 7092348-X (Version None)
Quarter: 2010Q4

REPORT INFORMATION
  Report Type: 
  Country: None (occurrence: None)
  Receive Date: 20101110
  Receipt Date: 20101028
  Transmission Date: 20110411
  Serious: Yes (Hospitalization)
  Sender: FDA-Public Use
  Company Number: US-BIOGENIDEC-2009BI031699

PATIENT
  Age: 28 Year
  Sex: Female
  Weight: 77 kg

DRUGS (1)
  1. TYSABRI [Suspect]
     Indication: MULTIPLE SCLEROSIS
     Route: 042
     Dates: start: 20080722, end: 20090831

REACTIONS (6)
  - COLITIS [None]
  - COMPLICATION OF DELIVERY [None]
  - CONSTIPATION [None]
  - DIARRHOEA [None]
  - HAEMATOCHEZIA [None]
  - INCISION SITE INFECTION [None]
